FAERS Safety Report 7979121-2 (Version None)
Quarter: 2011Q4

REPORT INFORMATION
  Report Type: 
  Country: None (occurrence: None)
  Receive Date: 20111214
  Receipt Date: 20111207
  Transmission Date: 20120403
  Serious: Yes (Other)
  Sender: FDA-Public Use
  Company Number: BR-PFIZER INC-2011298723

PATIENT
  Age: 21 Year
  Sex: Female
  Weight: 64 kg

DRUGS (3)
  1. LEVOTHYROXINE SODIUM [Concomitant]
     Dosage: 75 MG, 1X/DAY
     Dates: start: 20111121
  2. LEVONORGESTREL AND ETHINYL ESTRADIOL [Suspect]
     Indication: CONTRACEPTION
     Dosage: [LEVONORGESTREL 0.25MG] / [ETHINYL ESTRADIOL 0.05MG], DAILY
     Route: 048
     Dates: start: 20110101, end: 20111203
  3. LEVOTHYROXINE SODIUM [Concomitant]
     Indication: HYPOTHYROIDISM
     Dosage: 50 MG, 1X/DAY
     Dates: start: 20080101

REACTIONS (6)
  - URINARY TRACT INFECTION [None]
  - FEELING ABNORMAL [None]
  - INAPPROPRIATE SCHEDULE OF DRUG ADMINISTRATION [None]
  - SWELLING [None]
  - BREAST PAIN [None]
  - DISCOMFORT [None]
